FAERS Safety Report 16768290 (Version 4)
Quarter: 2019Q3

REPORT INFORMATION
  Report Type: Spontaneous
  Country: DE (occurrence: DE)
  Receive Date: 20190903
  Receipt Date: 20190919
  Transmission Date: 20191005
  Serious: Yes (Death, Other)
  Sender: FDA-Public Use
  Company Number: DE-JNJFOC-20190838562

PATIENT
  Age: 91 Year
  Sex: Male
  Weight: 87 kg

DRUGS (14)
  1. NOVAMINSULFON [Concomitant]
     Active Substance: METAMIZOLE
     Indication: ABDOMINAL PAIN
     Dosage: 40 GTT, QID
  2. ADENURIC [Concomitant]
     Active Substance: FEBUXOSTAT
     Dosage: 40 MG, QOD
  3. DECODERM TRI                       /00497901/ [Concomitant]
     Indication: SKIN LESION
  4. RAMILICH [Concomitant]
     Active Substance: RAMIPRIL
     Dosage: 5 MG, BID
  5. MELPERON [Concomitant]
     Active Substance: MELPERONE
     Indication: RESTLESSNESS
     Dosage: 25 MG, TID
  6. VERTIGOHEEL                        /07414001/ [Concomitant]
     Dosage: UNK UNK, TID
  7. RIVAROXABAN [Suspect]
     Active Substance: RIVAROXABAN
     Indication: ATRIAL FIBRILLATION
     Dosage: 1 DF, OM
     Route: 048
     Dates: start: 2014
  8. FUROSEMID RATIOPHARM               /00032601/ [Concomitant]
     Active Substance: FUROSEMIDE
     Dosage: 0.5 DF, QD
  9. CELEBREX [Concomitant]
     Active Substance: CELECOXIB
     Indication: ARTHRALGIA
     Dosage: 100 MG, QD
  10. NYSTATIN. [Concomitant]
     Active Substance: NYSTATIN
     Indication: FUNGAL INFECTION
     Dosage: UNK UNK, QD
  11. NOVAMINSULFON [Concomitant]
     Active Substance: METAMIZOLE
     Indication: HEADACHE
  12. INSULIN ASPART [Concomitant]
     Active Substance: INSULIN ASPART
     Dosage: 10-12-8
  13. LANTUS [Concomitant]
     Active Substance: INSULIN GLARGINE
     Dosage: 10 IU, QD
  14. METROLOTION [Concomitant]
     Active Substance: METRONIDAZOLE
     Route: 061

REACTIONS (3)
  - Subarachnoid haemorrhage [Fatal]
  - Somnolence [Fatal]
  - Apraxia [Fatal]

NARRATIVE: CASE EVENT DATE: 20190801
